FAERS Safety Report 5841176-9 (Version None)
Quarter: 2008Q3

REPORT INFORMATION
  Report Type: 
  Country: None (occurrence: None)
  Receive Date: 20080811
  Receipt Date: 20080811
  Transmission Date: 20090109
  Serious: Yes (Disabling)
  Sender: FDA-Public Use
  Company Number: None

PATIENT
  Age: 82 Year
  Sex: Female
  Weight: 46.7205 kg

DRUGS (2)
  1. ARICEPT [Suspect]
     Indication: DEMENTIA
     Dosage: 1 TAB ONCE A DAY PO
     Route: 048
     Dates: start: 20080101, end: 20080630
  2. ARICEPT [Suspect]
     Indication: PARKINSON'S DISEASE
     Dosage: 1 TAB ONCE A DAY PO
     Route: 048
     Dates: start: 20080101, end: 20080630

REACTIONS (5)
  - ABNORMAL BEHAVIOUR [None]
  - FEELING ABNORMAL [None]
  - GASTRIC ULCER HAEMORRHAGE [None]
  - SCRATCH [None]
  - SOMNAMBULISM [None]
